FAERS Safety Report 10172772 (Version 1)
Quarter: 2014Q2

REPORT INFORMATION
  Report Type: Spontaneous
  Country: US (occurrence: None)
  Receive Date: 20140513
  Receipt Date: 20140513
  Transmission Date: 20141212
  Serious: Yes (Other)
  Sender: FDA-Public Use
  Company Number: 2014-US-005309

PATIENT
  Age: 30 Year
  Sex: Female

DRUGS (2)
  1. XYREM (SODIUM OXYBATE) ORAL SOLUTION, 500MG/ML [Suspect]
     Indication: SOMNOLENCE
     Route: 048
     Dates: start: 20140305, end: 2014
  2. DAYTIME STIMULANT (OTHER PSYCHOSTIMULANTS AND NOOTROPICS) [Concomitant]

REACTIONS (5)
  - Weight increased [None]
  - Fatigue [None]
  - Somnolence [None]
  - Condition aggravated [None]
  - Off label use [None]
